FAERS Safety Report 4712348-1 (Version None)
Quarter: 2005Q3

REPORT INFORMATION
  Report Type: 
  Country: None (occurrence: None)
  Receive Date: 20050711
  Receipt Date: 20050628
  Transmission Date: 20060218
  Serious: Yes (Hospitalization, Other)
  Sender: FDA-Public Use
  Company Number: 2005087641

PATIENT
  Age: 53 Year
  Sex: Female
  Weight: 71.8 kg

DRUGS (2)
  1. LIPITOR [Suspect]
     Indication: LIPIDS INCREASED
     Dosage: 20 MG (20 MG, 1 IN 1 D)
     Dates: start: 20030101, end: 20030801
  2. GLUCOPHAGE [Suspect]
     Indication: ILL-DEFINED DISORDER

REACTIONS (88)
  - ABDOMINAL DISCOMFORT [None]
  - ABDOMINAL PAIN UPPER [None]
  - ALOPECIA [None]
  - ANTINUCLEAR ANTIBODY POSITIVE [None]
  - ANXIETY [None]
  - ARTHRALGIA [None]
  - ASTHENIA [None]
  - AUTONOMIC NEUROPATHY [None]
  - BACK PAIN [None]
  - BLOOD CHOLESTEROL INCREASED [None]
  - BLOOD MAGNESIUM DECREASED [None]
  - BLOOD TRIGLYCERIDES INCREASED [None]
  - BONE PAIN [None]
  - CALCINOSIS [None]
  - CALCULUS URETHRAL [None]
  - CHILLS [None]
  - CONSTIPATION [None]
  - COSTOVERTEBRAL ANGLE TENDERNESS [None]
  - DERMATOMYOSITIS [None]
  - DIABETES MELLITUS [None]
  - DIABETES MELLITUS NON-INSULIN-DEPENDENT [None]
  - DIARRHOEA [None]
  - DILATATION ATRIAL [None]
  - DIZZINESS [None]
  - DRY EYE [None]
  - DRY MOUTH [None]
  - DYSARTHRIA [None]
  - DYSPEPSIA [None]
  - DYSPHAGIA [None]
  - DYSPNOEA [None]
  - DYSTHYMIC DISORDER [None]
  - DYSURIA [None]
  - ESSENTIAL HYPERTENSION [None]
  - FATIGUE [None]
  - FEELING HOT [None]
  - FLANK PAIN [None]
  - GAIT DISTURBANCE [None]
  - GLOSSODYNIA [None]
  - GRANULOCYTE COUNT INCREASED [None]
  - GRIP STRENGTH DECREASED [None]
  - HAEMATURIA [None]
  - HEADACHE [None]
  - HEART RATE IRREGULAR [None]
  - HEPATIC STEATOSIS [None]
  - HEPATITIS B [None]
  - HYPERLIPIDAEMIA [None]
  - INFLAMMATION [None]
  - INSOMNIA [None]
  - LISTLESS [None]
  - LOW DENSITY LIPOPROTEIN INCREASED [None]
  - LYMPHADENOPATHY [None]
  - MENOPAUSE [None]
  - MONOCYTE PERCENTAGE DECREASED [None]
  - MUSCLE ATROPHY [None]
  - MUSCLE SPASMS [None]
  - MUSCLE SWELLING [None]
  - MUSCLE TIGHTNESS [None]
  - MUSCLE TWITCHING [None]
  - MUSCULAR WEAKNESS [None]
  - MUSCULOSKELETAL STIFFNESS [None]
  - MYALGIA [None]
  - MYOCARDIAL INFARCTION [None]
  - MYOPATHY TOXIC [None]
  - NAUSEA [None]
  - NEPHROLITHIASIS [None]
  - NOCTURIA [None]
  - OEDEMA PERIPHERAL [None]
  - PAIN [None]
  - PAIN IN EXTREMITY [None]
  - PALPITATIONS [None]
  - PELVIC PAIN [None]
  - PHARYNGOLARYNGEAL PAIN [None]
  - PLATELET COUNT DECREASED [None]
  - POLLAKIURIA [None]
  - POLYMYALGIA RHEUMATICA [None]
  - POLYMYOSITIS [None]
  - RASH [None]
  - RESPIRATORY DISTRESS [None]
  - RHABDOMYOLYSIS [None]
  - SENSATION OF HEAVINESS [None]
  - SKIN DISCOLOURATION [None]
  - TINNITUS [None]
  - TONGUE DISORDER [None]
  - VAGINAL CANDIDIASIS [None]
  - VERY LOW DENSITY LIPOPROTEIN INCREASED [None]
  - VOMITING [None]
  - WEIGHT DECREASED [None]
  - WHITE BLOOD CELL COUNT INCREASED [None]
